FAERS Safety Report 5300686-3 (Version None)
Quarter: 2007Q2

REPORT INFORMATION
  Report Type: 
  Country: None (occurrence: None)
  Receive Date: 20070418
  Receipt Date: 20070416
  Transmission Date: 20071010
  Serious: Yes (Hospitalization)
  Sender: FDA-Public Use
  Company Number: FR-GENENTECH-227518

PATIENT
  Sex: Female

DRUGS (4)
  1. RAPTIVA [Suspect]
     Indication: PSORIASIS
     Dosage: 0.8 ML, 1/WEEK
     Route: 058
     Dates: start: 20050411, end: 20060615
  2. CORTANCYL [Concomitant]
     Indication: PSORIASIS
     Route: 048
     Dates: start: 20030101
  3. CELLCEPT [Concomitant]
     Indication: PSORIASIS
     Dosage: 1.5 G, QD
     Route: 048
     Dates: start: 20031006, end: 20050501
  4. AZATHIOPRINE SODIUM [Concomitant]
     Indication: PSORIASIS
     Route: 048
     Dates: start: 20050501, end: 20060601

REACTIONS (5)
  - ARTHRALGIA [None]
  - AUTOIMMUNE DISORDER [None]
  - HEPATITIS [None]
  - LUPUS-LIKE SYNDROME [None]
  - PERICARDITIS [None]
